FAERS Safety Report 7357597-1 (Version None)
Quarter: 2011Q1

REPORT INFORMATION
  Report Type: 
  Country: None (occurrence: None)
  Receive Date: 20110317
  Receipt Date: 20110314
  Transmission Date: 20110831
  Serious: Yes (Hospitalization, Other)
  Sender: FDA-Public Use
  Company Number: CH-BRISTOL-MYERS SQUIBB COMPANY-15508914

PATIENT
  Age: 51 Year
  Sex: Male

DRUGS (1)
  1. ABILIFY [Suspect]
     Indication: SCHIZOAFFECTIVE DISORDER
     Dosage: INITIALLY 20MG REDUCED TO 15MG/DAY 22NOV2010,10MG DAILY.
     Route: 048

REACTIONS (4)
  - PROSTATE CANCER METASTATIC [None]
  - EXTRAPYRAMIDAL DISORDER [None]
  - DEPRESSION [None]
  - WEIGHT INCREASED [None]
